FAERS Safety Report 23257009 (Version 1)
Quarter: 2023Q4

REPORT INFORMATION
  Report Type: Report from Study
  Country: US (occurrence: US)
  Receive Date: 20231204
  Receipt Date: 20231204
  Transmission Date: 20240110
  Serious: Yes (Hospitalization)
  Sender: FDA-Public Use
  Company Number: US-ULTRAGENYX PHARMACEUTICAL INC.-US-UGX-23-01298

PATIENT
  Sex: Female

DRUGS (2)
  1. DOJOLVI [Suspect]
     Active Substance: TRIHEPTANOIN
     Indication: Fatty acid oxidation disorder
     Dosage: 11 MILLILITER, QID
     Route: 048
     Dates: start: 20230109
  2. DOJOLVI [Suspect]
     Active Substance: TRIHEPTANOIN
     Dosage: 7 MILLILITER, QID
     Route: 048

REACTIONS (5)
  - Gastrointestinal disorder [Unknown]
  - Weight decreased [Unknown]
  - Feeding disorder [Recovering/Resolving]
  - Vomiting [Unknown]
  - Diarrhoea [Unknown]
